FAERS Safety Report 19572961 (Version 3)
Quarter: 2022Q1

REPORT INFORMATION
  Report Type: Spontaneous
  Country: US (occurrence: US)
  Receive Date: 20210716
  Receipt Date: 20220210
  Transmission Date: 20220423
  Serious: Yes (Other)
  Sender: FDA-Public Use
  Company Number: US-GILEAD-2021-0540473

PATIENT
  Age: 54 Year
  Sex: Male

DRUGS (2)
  1. TRUVADA [Suspect]
     Active Substance: EMTRICITABINE\TENOFOVIR DISOPROXIL FUMARATE
     Indication: HIV infection
     Dosage: UNK
     Route: 048
     Dates: start: 2004, end: 2021
  2. TRUVADA [Suspect]
     Active Substance: EMTRICITABINE\TENOFOVIR DISOPROXIL FUMARATE
     Dosage: UNK
     Route: 065
     Dates: start: 201103

REACTIONS (7)
  - Chronic kidney disease [Not Recovered/Not Resolved]
  - Chronic kidney disease [Not Recovered/Not Resolved]
  - Osteonecrosis [Recovered/Resolved]
  - Pain [Recovered/Resolved]
  - Emotional distress [Recovered/Resolved]
  - Anxiety [Recovered/Resolved]
  - Anhedonia [Recovered/Resolved]

NARRATIVE: CASE EVENT DATE: 20150201
